FAERS Safety Report 8809816 (Version 3)
Quarter: 2012Q4

REPORT INFORMATION
  Report Type: 
  Country: EE (occurrence: EE)
  Receive Date: 20120926
  Receipt Date: 20121029
  Transmission Date: 20130627
  Serious: Yes (Hospitalization, Other)
  Sender: FDA-Public Use
  Company Number: EE-ABBOTT-12P-221-0983984-00

PATIENT
  Age: 18 Year
  Sex: Female
  Weight: 66 kg

DRUGS (4)
  1. HUMIRA PRE-FILLED SYRINGE [Suspect]
     Indication: SPONDYLITIS
     Route: 058
     Dates: start: 20111013, end: 20120829
  2. PREDNISOLONI [Concomitant]
     Indication: SPONDYLITIS
     Dates: start: 20120910
  3. NON-STERIODAL ANTI-INFLAMMATORY DRUGS [Concomitant]
     Indication: PRODUCT USED FOR UNKNOWN INDICATION
  4. METHOTREXATE [Concomitant]
     Indication: PRODUCT USED FOR UNKNOWN INDICATION

REACTIONS (13)
  - Hyperacusis [Recovered/Resolved]
  - Herpes zoster [Recovered/Resolved]
  - Meningitis [Recovered/Resolved]
  - Headache [Recovered/Resolved]
  - Photophobia [Recovered/Resolved]
  - Dermatitis bullous [Recovered/Resolved]
  - Nausea [Recovered/Resolved]
  - Nuchal rigidity [Not Recovered/Not Resolved]
  - Hyperaesthesia [Recovered/Resolved]
  - Dyspepsia [Recovered/Resolved]
  - Pain [Unknown]
  - Blood creatinine increased [Recovered/Resolved]
  - Immunosuppression [Unknown]
